FAERS Safety Report 4301480-2 (Version None)
Quarter: 2004Q1

REPORT INFORMATION
  Report Type: 
  Country: None (occurrence: None)
  Receive Date: 20040219
  Receipt Date: 20040210
  Transmission Date: 20041129
  Serious: Yes (Other)
  Sender: FDA-Public Use
  Company Number: GB-JNJFOC-20040202057

PATIENT
  Age: 62 Year
  Sex: Male
  Weight: 83 kg

DRUGS (5)
  1. REMICADE [Suspect]
     Indication: RHEUMATOID ARTHRITIS
     Dosage: 250 MG, 1 IN 8 WEEK, INTRAVENOUS
     Route: 042
     Dates: start: 20031018, end: 20031107
  2. COVERSYL (PERINDOPRIL) [Concomitant]
  3. PREDNISOLONE [Concomitant]
  4. WARFARIN SODIUM [Concomitant]
  5. CALCICHEW D3 (CALCIUM CARBONATE) [Concomitant]

REACTIONS (5)
  - ANAPHYLACTIC REACTION [None]
  - BLOOD PRESSURE IMMEASURABLE [None]
  - CYANOSIS [None]
  - DYSPNOEA [None]
  - HYPERSENSITIVITY [None]
